FAERS Safety Report 7318683 (Version 3)
Quarter: 2012Q4

REPORT INFORMATION
  Report Type: 
  Country: NZ (occurrence: NZ)
  Receive Date: 20100312
  Receipt Date: 20120921
  Transmission Date: 20130627
  Serious: Yes (Hospitalization, Other)
  Sender: FDA-Public Use
  Company Number: PHHY2010NZ12139

PATIENT
  Sex: Male

DRUGS (3)
  1. TASIGNA [Suspect]
     Indication: CHRONIC MYELOID LEUKAEMIA
     Route: 048
     Dates: start: 200802
  2. ASPIRIN ^BAYER^ [Concomitant]
  3. ENALAPRIL [Concomitant]
     Indication: LEFT VENTRICULAR DYSFUNCTION
     Dosage: 10 mg/day

REACTIONS (4)
  - Femoral artery occlusion [Recovered/Resolved with Sequelae]
  - Vascular graft occlusion [Unknown]
  - Pleural effusion [Recovered/Resolved with Sequelae]
  - Hypoaesthesia [Unknown]
